FAERS Safety Report 8460291-7 (Version None)
Quarter: 2012Q2

REPORT INFORMATION
  Report Type: 
  Country: None (occurrence: None)
  Receive Date: 20120622
  Receipt Date: 20120612
  Transmission Date: 20120825
  Serious: Yes (Hospitalization, Other)
  Sender: FDA-Public Use
  Company Number: US-ACTELION-A-US2011-52689

PATIENT

DRUGS (2)
  1. COUMADIN [Concomitant]
  2. TRACLEER [Suspect]
     Indication: PULMONARY ARTERIAL HYPERTENSION
     Dosage: UNK
     Route: 048
     Dates: start: 20100119

REACTIONS (8)
  - FATIGUE [None]
  - POST PROCEDURAL COMPLICATION [None]
  - OEDEMA [None]
  - OEDEMA PERIPHERAL [None]
  - PHARYNGEAL DISORDER [None]
  - PHARYNGEAL OPERATION [None]
  - MALAISE [None]
  - MUSCULOSKELETAL PAIN [None]
